FAERS Safety Report 17531651 (Version 1)
Quarter: 2020Q1

REPORT INFORMATION
  Report Type: Spontaneous
  Country: IL (occurrence: IL)
  Receive Date: 20200312
  Receipt Date: 20200312
  Transmission Date: 20200409
  Serious: Yes (Hospitalization, Other)
  Sender: FDA-Public Use
  Company Number: IL-SA-2020SA060029

PATIENT
  Age: 68 Year
  Sex: Female

DRUGS (1)
  1. LANTUS [Suspect]
     Active Substance: INSULIN GLARGINE
     Dosage: UNK, QD
     Route: 058

REACTIONS (3)
  - Product storage error [Unknown]
  - Sepsis [Unknown]
  - International normalised ratio decreased [Unknown]

NARRATIVE: CASE EVENT DATE: 20200301
